FAERS Safety Report 4264840-4 (Version None)
Quarter: 2004Q1

REPORT INFORMATION
  Report Type: 
  Country: None (occurrence: None)
  Receive Date: 20040105
  Receipt Date: 20031217
  Transmission Date: 20041129
  Serious: Yes (Death, Hospitalization)
  Sender: FDA-Public Use
  Company Number: STA-AE-03-MTX-189

PATIENT
  Age: 92 Year
  Sex: Female

DRUGS (2)
  1. METHOTREXATE [Suspect]
     Indication: PSORIASIS
     Dosage: 2.5 TO 20 MG WEEKLY, ORAL
     Route: 048
     Dates: start: 19940101, end: 19991001
  2. FOLIC ACID [Concomitant]

REACTIONS (2)
  - MUCOSAL INFLAMMATION [None]
  - PANCYTOPENIA [None]
